FAERS Safety Report 5463977-1 (Version None)
Quarter: 2007Q3

REPORT INFORMATION
  Report Type: 
  Country: None (occurrence: None)
  Receive Date: 20070919
  Receipt Date: 20070906
  Transmission Date: 20080115
  Serious: Yes (Hospitalization)
  Sender: FDA-Public Use
  Company Number: GXKR2007US07808

PATIENT
  Age: 26 Month
  Sex: Male
  Weight: 14 kg

DRUGS (7)
  1. PROPRANOLOL [Suspect]
  2. KETAMINE (NGX) (KETAMINE) UNKNOWN [Suspect]
     Indication: GENERAL ANAESTHESIA
     Dosage: 5 MG, ONCE2SDO
  3. SEVOFLURANE [Suspect]
     Indication: GENERAL ANAESTHESIA
  4. SUCCINYLCHOLINE CHLORIDE [Concomitant]
  5. MISTABRON (MESNA) [Concomitant]
  6. MUCOSOLVAN (AMBROXOL HYDROCHLORIDE) [Concomitant]
  7. ENZYMES (NO INGREDIENTS/SUBSTANCES) [Concomitant]

REACTIONS (4)
  - ARRHYTHMIA [None]
  - BRADYCARDIA [None]
  - SUPRAVENTRICULAR TACHYCARDIA [None]
  - VENTRICULAR TACHYCARDIA [None]
